FAERS Safety Report 4818169-3 (Version None)
Quarter: 2005Q4

REPORT INFORMATION
  Report Type: 
  Country: None (occurrence: None)
  Receive Date: 20051102
  Receipt Date: 20051011
  Transmission Date: 20060501
  Serious: No
  Sender: FDA-Public Use
  Company Number: 2005AP05331

PATIENT
  Age: 19675 Day
  Sex: Male

DRUGS (3)
  1. OMEPRAZOLE [Suspect]
     Indication: REFLUX OESOPHAGITIS
     Route: 048
     Dates: start: 20050819, end: 20050921
  2. SOLITA-T [Concomitant]
     Dates: start: 20050823, end: 20050927
  3. NICHIPHAGEN [Concomitant]
     Dates: start: 20050823, end: 20050927

REACTIONS (1)
  - WHITE BLOOD CELL COUNT INCREASED [None]
